FAERS Safety Report 22619905 (Version 1)
Quarter: 2023Q2

REPORT INFORMATION
  Report Type: Spontaneous
  Country: US (occurrence: None)
  Receive Date: 20230615
  Receipt Date: 20230615
  Transmission Date: 20230722
  Serious: Yes (Life-Threatening)
  Sender: FDA-Public Use
  Company Number: None

PATIENT
  Age: 50 Year
  Sex: Male
  Weight: 112 kg

DRUGS (1)
  1. IODIXANOL [Suspect]
     Active Substance: IODIXANOL
     Dosage: FREQUENCY : ONCE;?
     Route: 042
     Dates: start: 20230531, end: 20230531

REACTIONS (4)
  - Swelling [None]
  - Erythema multiforme [None]
  - Urticaria [None]
  - Rash pruritic [None]

NARRATIVE: CASE EVENT DATE: 20230531
